FAERS Safety Report 4999449-8 (Version None)
Quarter: 2006Q2

REPORT INFORMATION
  Report Type: 
  Country: None (occurrence: None)
  Receive Date: 20060509
  Receipt Date: 20060509
  Transmission Date: 20061013
  Serious: Yes (Life-Threatening, Hospitalization)
  Sender: FDA-Public Use
  Company Number: None

PATIENT
  Age: 85 Year
  Sex: Female

DRUGS (12)
  1. HEPARIN [Suspect]
     Indication: ATRIAL FIBRILLATION
     Dosage: 1300 UNITS/HR IV
     Route: 042
     Dates: start: 20051201, end: 20051205
  2. AMIODARONE [Concomitant]
  3. ASPIRIN [Concomitant]
  4. INSULIN [Concomitant]
  5. DOCUSATE [Concomitant]
  6. ENALAPRIL [Concomitant]
  7. FUROSEMIDE [Concomitant]
  8. HYDRALAZINE HCL [Concomitant]
  9. METOPROLOL TARTRATE [Concomitant]
  10. OXYCODONE AND ACETAMINOPHEN [Concomitant]
  11. POTASSIUM CHLORIDE [Concomitant]
  12. RANITIDINE [Concomitant]

REACTIONS (3)
  - CONDITION AGGRAVATED [None]
  - HEPARIN-INDUCED THROMBOCYTOPENIA [None]
  - PLATELET COUNT DECREASED [None]
